FAERS Safety Report 6824061-5 (Version None)
Quarter: 2010Q3

REPORT INFORMATION
  Report Type: 
  Country: None (occurrence: None)
  Receive Date: 20100708
  Receipt Date: 20061212
  Transmission Date: 20110219
  Serious: No
  Sender: FDA-Public Use
  Company Number: US-PFIZER INC-2006112227

PATIENT
  Age: 54 Year
  Sex: Female
  Weight: 102.97 kg

DRUGS (4)
  1. CHANTIX [Suspect]
     Dates: start: 20060801, end: 20060801
  2. ADVAIR DISKUS 100/50 [Concomitant]
  3. ZYRTEC [Concomitant]
  4. MOTRIN [Concomitant]

REACTIONS (4)
  - PRURITUS [None]
  - RASH [None]
  - SKIN EXFOLIATION [None]
  - SKIN REACTION [None]
